FAERS Safety Report 7770971-4 (Version None)
Quarter: 2011Q3

REPORT INFORMATION
  Report Type: 
  Country: None (occurrence: None)
  Receive Date: 20110922
  Receipt Date: 20110419
  Transmission Date: 20111222
  Serious: No
  Sender: FDA-Public Use
  Company Number: US-ASTRAZENECA-2010SE13550

PATIENT
  Age: 10429 Day
  Sex: Female
  Weight: 61.2 kg

DRUGS (2)
  1. SEROQUEL [Suspect]
     Route: 048
  2. SEROQUEL [Suspect]
     Indication: BIPOLAR DISORDER
     Route: 048
     Dates: start: 20090301

REACTIONS (8)
  - FATIGUE [None]
  - DRUG DOSE OMISSION [None]
  - MIDDLE INSOMNIA [None]
  - EMOTIONAL DISORDER [None]
  - MALAISE [None]
  - ANXIETY [None]
  - STRESS [None]
  - INSOMNIA [None]
